FAERS Safety Report 6678275-8 (Version None)
Quarter: 2010Q2

REPORT INFORMATION
  Report Type: 
  Country: None (occurrence: None)
  Receive Date: 20100412
  Receipt Date: 20100406
  Transmission Date: 20101027
  Serious: Yes (Hospitalization)
  Sender: FDA-Public Use
  Company Number: FR-BRISTOL-MYERS SQUIBB COMPANY-15052046

PATIENT
  Age: 6 Year
  Sex: Male

DRUGS (5)
  1. HYDREA [Suspect]
     Route: 048
     Dates: start: 20080701, end: 20090219
  2. IBUPROFEN (ADVIL) [Suspect]
     Indication: PAIN
     Route: 048
     Dates: start: 20090213, end: 20090214
  3. EXJADE [Suspect]
     Route: 048
     Dates: start: 20070101, end: 20090219
  4. ORACILLINE [Concomitant]
     Dates: start: 20070101
  5. FOLDINE [Concomitant]
     Dates: start: 20070101

REACTIONS (1)
  - RENAL TUBULAR NECROSIS [None]
